FAERS Safety Report 4978581-9 (Version None)
Quarter: 2006Q2

REPORT INFORMATION
  Report Type: 
  Country: None (occurrence: None)
  Receive Date: 20060420
  Receipt Date: 20051221
  Transmission Date: 20061013
  Serious: Yes (Hospitalization, Other)
  Sender: FDA-Public Use
  Company Number: US-MERCK-0512USA03421

PATIENT
  Age: 69 Year
  Sex: Male
  Weight: 98 kg

DRUGS (8)
  1. VIOXX [Suspect]
     Indication: ARTHRALGIA
     Route: 048
     Dates: start: 20010803, end: 20040930
  2. PRINIVIL [Concomitant]
     Route: 048
     Dates: start: 19800101
  3. ZOCOR [Concomitant]
     Route: 048
     Dates: start: 19950101
  4. GLYBURIDE [Concomitant]
     Route: 065
  5. NORVASC [Concomitant]
     Route: 065
     Dates: start: 19950101
  6. DYAZIDE [Concomitant]
     Route: 065
  7. NAPROSYN [Suspect]
     Route: 065
     Dates: start: 19990101, end: 20010801
  8. ASPIRIN [Concomitant]
     Indication: PROPHYLAXIS
     Route: 065
     Dates: start: 19780101

REACTIONS (5)
  - CEREBROVASCULAR ACCIDENT [None]
  - CONSTIPATION [None]
  - CORNEAL DISORDER [None]
  - CORNEAL TRANSPLANT [None]
  - DYSPEPSIA [None]
